FAERS Safety Report 8970768 (Version 1)
Quarter: 2012Q4

REPORT INFORMATION
  Report Type: 
  Country: CN (occurrence: CN)
  Receive Date: 20121218
  Receipt Date: 20121218
  Transmission Date: 20130627
  Serious: Yes (Other)
  Sender: FDA-Public Use
  Company Number: CN-PFIZER INC-2012309662

PATIENT
  Age: 80 Year
  Sex: Male

DRUGS (7)
  1. CORDARONE [Suspect]
     Indication: ATRIAL FIBRILLATION
     Dosage: 200 mg, 3x/day
     Route: 048
     Dates: start: 20120820, end: 20120826
  2. CORDARONE [Suspect]
     Dosage: 200 mg, 2x/day
     Route: 048
     Dates: start: 20120827, end: 20120902
  3. CORDARONE [Suspect]
     Dosage: 200 mg, 1x/day
     Route: 048
     Dates: start: 20120903, end: 20120909
  4. CORDARONE [Suspect]
     Dosage: 100 mg, 1x/day
     Route: 048
     Dates: start: 20120910
  5. ATORVASTATIN [Concomitant]
     Dosage: UNK
  6. ASPIRIN [Concomitant]
     Dosage: UNK
  7. ISOSORBIDE MONONITRATE [Concomitant]
     Dosage: UNK

REACTIONS (4)
  - Atrial fibrillation [Not Recovered/Not Resolved]
  - Constipation [Not Recovered/Not Resolved]
  - Abnormal faeces [Not Recovered/Not Resolved]
  - Diarrhoea [Recovered/Resolved]
